FAERS Safety Report 6967795-4 (Version None)
Quarter: 2010Q3

REPORT INFORMATION
  Report Type: 
  Country: None (occurrence: None)
  Receive Date: 20100907
  Receipt Date: 20100901
  Transmission Date: 20110219
  Serious: Yes (Life-Threatening, Other)
  Sender: FDA-Public Use
  Company Number: JP-BAYER-201013552BYL

PATIENT
  Age: 69 Year
  Sex: Male
  Weight: 52 kg

DRUGS (6)
  1. CIPROXAN-I.V. [Suspect]
     Indication: PNEUMONIA PNEUMOCOCCAL
     Route: 041
     Dates: start: 20071122, end: 20071126
  2. CARBENIN [Concomitant]
     Indication: PNEUMONIA
     Dosage: UNIT DOSE: 0.5 G
     Route: 041
     Dates: start: 20071119, end: 20071128
  3. SAXIZON [Concomitant]
     Indication: HYPOXIA
     Dosage: UNIT DOSE: 100 MG
     Route: 041
     Dates: start: 20071119, end: 20071129
  4. VENOGLOBULIN [Concomitant]
     Indication: PNEUMONIA
     Dosage: UNIT DOSE: 5 G
     Route: 041
     Dates: start: 20071121, end: 20071121
  5. ELASPOL [Concomitant]
     Indication: HYPOXIA
     Dosage: UNIT DOSE: 100 MG
     Route: 041
     Dates: start: 20071121, end: 20071207
  6. MINOCYCLINE HCL [Concomitant]
     Indication: PNEUMONIA
     Dosage: UNIT DOSE: 100 MG
     Route: 041
     Dates: start: 20071119, end: 20071122

REACTIONS (4)
  - HEPATIC FUNCTION ABNORMAL [None]
  - PNEUMONIA [None]
  - PYOTHORAX [None]
  - SEPTIC SHOCK [None]
